FAERS Safety Report 19421853 (Version 1)
Quarter: 2021Q2

REPORT INFORMATION
  Report Type: Spontaneous
  Country: SI (occurrence: SI)
  Receive Date: 20210616
  Receipt Date: 20210616
  Transmission Date: 20210717
  Serious: Yes (Other)
  Sender: FDA-Public Use
  Company Number: SI-ASTRAZENECA-2021A508678

PATIENT
  Sex: Female

DRUGS (8)
  1. CITALOPRAM [Concomitant]
     Active Substance: CITALOPRAM HYDROBROMIDE
  2. LACIPIL [Concomitant]
     Active Substance: LACIDIPINE
  3. TULIP [Concomitant]
  4. LYRICA [Concomitant]
     Active Substance: PREGABALIN
  5. FOLACIN [Concomitant]
  6. FORXIGA [Suspect]
     Active Substance: DAPAGLIFLOZIN
     Indication: TYPE 2 DIABETES MELLITUS
     Route: 048
     Dates: start: 20210503, end: 20210531
  7. MICARDIS [Concomitant]
     Active Substance: TELMISARTAN
  8. IRON SULPHATE [Concomitant]
     Active Substance: FERROUS SULFATE ANHYDROUS

REACTIONS (1)
  - Hyperhidrosis [Recovered/Resolved]
